FAERS Safety Report 21908181 (Version 1)
Quarter: 2023Q1

REPORT INFORMATION
  Report Type: Spontaneous
  Country: IT (occurrence: IT)
  Receive Date: 20230125
  Receipt Date: 20230125
  Transmission Date: 20230417
  Serious: Yes (Hospitalization)
  Sender: FDA-Public Use
  Company Number: IT-MYLANLABS-2023M1007835

PATIENT
  Age: 71 Year
  Sex: Female

DRUGS (7)
  1. PACLITAXEL [Suspect]
     Active Substance: PACLITAXEL
     Indication: Ovarian cancer
     Dosage: 80 MILLIGRAM/SQ. METER, QW (THREE CYCLES)
     Route: 042
     Dates: start: 20170824, end: 20171102
  2. PACLITAXEL [Suspect]
     Active Substance: PACLITAXEL
     Indication: Ovarian cancer
     Dosage: UNK, CYCLE (THREE ADJUVANT CYLES)
     Route: 065
     Dates: start: 20180118, end: 20180319
  3. CARBOPLATIN [Suspect]
     Active Substance: CARBOPLATIN
     Indication: Ovarian cancer
     Dosage: UNK, Q3W (AUC 5; THREE CYCLES)
     Route: 042
     Dates: start: 20170824, end: 20171102
  4. CARBOPLATIN [Suspect]
     Active Substance: CARBOPLATIN
     Indication: Ovarian cancer
     Dosage: UNK, CYCLE (THREE ADJUVANT CYCLES)
     Route: 065
     Dates: start: 20180118, end: 20180319
  5. CARBOPLATIN [Suspect]
     Active Substance: CARBOPLATIN
     Dosage: UNK SECOND-LINE CHEMOTHERAPY WITH CARBOPLATIN
     Route: 065
     Dates: start: 20191209, end: 20200505
  6. CARBOPLATIN [Suspect]
     Active Substance: CARBOPLATIN
     Dosage: UNK SHE STARTED CHEMOTHERAPY AGAIN WITH CARBOPLATIN
     Route: 065
     Dates: start: 20220603
  7. AVELUMAB [Suspect]
     Active Substance: AVELUMAB
     Indication: Ovarian cancer
     Dosage: 10 MILLIGRAM/KILOGRAM, BIWEEKLY (19 CYCLES)
     Route: 065
     Dates: start: 20180405, end: 20181211

REACTIONS (2)
  - Drug ineffective [Unknown]
  - Disease progression [Unknown]
